FAERS Safety Report 13861770 (Version 2)
Quarter: 2018Q2

REPORT INFORMATION
  Report Type: Spontaneous
  Country: CA (occurrence: CA)
  Receive Date: 20170811
  Receipt Date: 20180430
  Transmission Date: 20180711
  Serious: Yes (Other)
  Sender: FDA-Public Use
  Company Number: CA-PFIZER INC-2017349287

PATIENT
  Age: 68 Year
  Sex: Female

DRUGS (5)
  1. METHOTREXATE SODIUM. [Suspect]
     Active Substance: METHOTREXATE SODIUM
     Indication: RHEUMATOID ARTHRITIS
     Dosage: UNK, 78.0 DAYS
     Route: 065
  2. HYDROXYCHLOROQUINE [Suspect]
     Active Substance: HYDROXYCHLOROQUINE
     Dosage: UNK, 110.0 DAYS
     Route: 065
  3. ORENCIA [Suspect]
     Active Substance: ABATACEPT
     Dosage: UNK
     Route: 065
  4. REMICADE [Suspect]
     Active Substance: INFLIXIMAB
     Dosage: UNK
     Route: 065
  5. ENBREL [Suspect]
     Active Substance: ETANERCEPT
     Indication: RHEUMATOID ARTHRITIS
     Dosage: UNK
     Route: 065

REACTIONS (15)
  - C-reactive protein abnormal [Unknown]
  - Nausea [Unknown]
  - Pruritus [Unknown]
  - Infection [Unknown]
  - Red blood cell sedimentation rate abnormal [Unknown]
  - Urinary tract infection [Unknown]
  - Drug intolerance [Unknown]
  - Monocytosis [Unknown]
  - Arthritis [Unknown]
  - Chronic sinusitis [Unknown]
  - Neutropenia [Unknown]
  - Bronchitis [Unknown]
  - Synovitis [Unknown]
  - Sinusitis [Unknown]
  - Psoriasis [Unknown]
